FAERS Safety Report 13792473 (Version 2)
Quarter: 2017Q3

REPORT INFORMATION
  Report Type: Spontaneous
  Country: US (occurrence: US)
  Receive Date: 20170726
  Receipt Date: 20170809
  Transmission Date: 20171127
  Serious: No
  Sender: FDA-Public Use
  Company Number: US-AMGEN-USASP2017110223

PATIENT
  Age: 43 Year
  Sex: Female

DRUGS (1)
  1. ENBREL [Suspect]
     Active Substance: ETANERCEPT
     Indication: SYSTEMIC LUPUS ERYTHEMATOSUS
     Dosage: 50 MG, QWK
     Route: 058
     Dates: start: 20170505

REACTIONS (7)
  - Rash [Unknown]
  - Wound secretion [Unknown]
  - Nasal discomfort [Unknown]
  - Stomatitis [Unknown]
  - Breast ulceration [Unknown]
  - Off label use [Unknown]
  - Wound complication [Unknown]

NARRATIVE: CASE EVENT DATE: 2017
